FAERS Safety Report 11050931 (Version 1)
Quarter: 2015Q2

REPORT INFORMATION
  Report Type: Spontaneous
  Country: US (occurrence: US)
  Receive Date: 20150421
  Receipt Date: 20150421
  Transmission Date: 20150821
  Serious: Yes (Death)
  Sender: FDA-Public Use
  Company Number: US-CIPLA LTD.-2015US03013

PATIENT

DRUGS (3)
  1. DOCETAXEL. [Suspect]
     Active Substance: DOCETAXEL
     Indication: NEOPLASM
     Dosage: 75 MG/M2, ON CYCLE 1, DAY 1 OVER 60 MIN, EVERY 3 WEEKS AT LEAST THREE CYCLES
     Route: 042
  2. CARBOPLATIN. [Suspect]
     Active Substance: CARBOPLATIN
     Indication: NEOPLASM
     Dosage: UNDER THE CONCENTRATION TIME CURVE (AUC) DOSE OF 6 MG/ML/MIN, EVERY 3 WEEKS AT LEAST THREE CYCLES
     Route: 065
  3. TRASTUZUMAB [Suspect]
     Active Substance: TRASTUZUMAB
     Indication: NEOPLASM
     Dosage: 6 MG/KG, INFUSION OVER 90 MIN
     Route: 042

REACTIONS (1)
  - Haemorrhagic stroke [Fatal]
